FAERS Safety Report 7826950-1 (Version None)
Quarter: 2011Q4

REPORT INFORMATION
  Report Type: 
  Country: None (occurrence: None)
  Receive Date: 20111020
  Receipt Date: 20111011
  Transmission Date: 20120403
  Serious: Yes (Hospitalization)
  Sender: FDA-Public Use
  Company Number: US-JNJFOC-20110605201

PATIENT
  Sex: Male
  Weight: 81.65 kg

DRUGS (3)
  1. CHEMOTHERAPY,  NOS [Concomitant]
     Indication: LEUKAEMIA
     Route: 065
  2. PREDNISONE [Concomitant]
     Route: 048
  3. RISPERDAL [Suspect]
     Indication: PRODUCT USED FOR UNKNOWN INDICATION
     Route: 065
     Dates: start: 20110401

REACTIONS (6)
  - TARDIVE DYSKINESIA [None]
  - DYSTONIA [None]
  - DRUG DISPENSING ERROR [None]
  - PARALYSIS [None]
  - HALLUCINATION [None]
  - NIGHTMARE [None]
